FAERS Safety Report 5932725-0 (Version None)
Quarter: 2008Q4

REPORT INFORMATION
  Report Type: 
  Country: None (occurrence: None)
  Receive Date: 20081028
  Receipt Date: 20080923
  Transmission Date: 20090506
  Serious: Yes (Life-Threatening, Other)
  Sender: FDA-Public Use
  Company Number: PHEH2008US08056

PATIENT
  Sex: Female

DRUGS (3)
  1. RECLAST [Suspect]
     Indication: OSTEOPOROSIS
     Dosage: 5 MG, UNK
     Dates: start: 20080908
  2. VITAMIN D [Concomitant]
  3. CALCIUM [Concomitant]

REACTIONS (6)
  - APPARENT DEATH [None]
  - BACK PAIN [None]
  - CHILLS [None]
  - PAIN [None]
  - PARALYSIS [None]
  - PYREXIA [None]
